FAERS Safety Report 18415215 (Version 1)
Quarter: 2020Q4

REPORT INFORMATION
  Report Type: Spontaneous
  Country: US (occurrence: US)
  Receive Date: 20201022
  Receipt Date: 20201022
  Transmission Date: 20210114
  Serious: No
  Sender: FDA-Public Use
  Company Number: None

PATIENT
  Age: 86 Year
  Sex: Female
  Weight: 78.47 kg

DRUGS (1)
  1. LACTULOSE (LACTULOSE 10GM/15ML SOLN, ORAL) [Suspect]
     Active Substance: LACTULOSE
     Indication: CONSTIPATION
     Dosage: ?          OTHER STRENGTH:10GM/15ML;?
     Route: 048
     Dates: start: 20150702, end: 20200820

REACTIONS (1)
  - Rash [None]

NARRATIVE: CASE EVENT DATE: 20200820
